FAERS Safety Report 6381425-4 (Version None)
Quarter: 2009Q3

REPORT INFORMATION
  Report Type: 
  Country: None (occurrence: None)
  Receive Date: 20090924
  Receipt Date: 20090916
  Transmission Date: 20100115
  Serious: Yes (Hospitalization, Other)
  Sender: FDA-Public Use
  Company Number: SPV1-2009-01846

PATIENT
  Age: 9 Year
  Sex: Male
  Weight: 45.4 kg

DRUGS (4)
  1. ADDERALL XR 10 [Suspect]
     Indication: ATTENTION DEFICIT/HYPERACTIVITY DISORDER
     Dosage: 30 MG, 1X/DAY:QD, ORAL
     Route: 048
     Dates: start: 20080601, end: 20090501
  2. SINGULAIR /01362601/ (MONTELUKAST) [Concomitant]
  3. ADVAIR DISKUS 100/50 [Concomitant]
  4. ALLEGRA  /01314201/ (FEXOFENADINE) [Concomitant]

REACTIONS (6)
  - DYSPNOEA [None]
  - GRAND MAL CONVULSION [None]
  - MOOD ALTERED [None]
  - OXYGEN SATURATION DECREASED [None]
  - RESPIRATORY ARREST [None]
  - VOCAL CORD DISORDER [None]
